FAERS Safety Report 25026230 (Version 1)
Quarter: 2025Q1

REPORT INFORMATION
  Report Type: Spontaneous
  Country: BR (occurrence: BR)
  Receive Date: 20250301
  Receipt Date: 20250301
  Transmission Date: 20250409
  Serious: Yes (Disabling)
  Sender: JOHNSON AND JOHNSON
  Company Number: BR-JNJFOC-20250264648

PATIENT

DRUGS (1)
  1. STELARA [Suspect]
     Active Substance: USTEKINUMAB
     Indication: Psoriasis
     Route: 058

REACTIONS (3)
  - Wheelchair user [Unknown]
  - Urinary tract infection [Unknown]
  - Nervous system disorder [Unknown]
